FAERS Safety Report 7630352-0 (Version None)
Quarter: 2011Q3

REPORT INFORMATION
  Report Type: 
  Country: None (occurrence: None)
  Receive Date: 20110722
  Receipt Date: 20110630
  Transmission Date: 20111222
  Serious: Yes (Hospitalization)
  Sender: FDA-Public Use
  Company Number: US-GLAXOSMITHKLINE-A0350619A

PATIENT
  Age: 71 Year
  Sex: Male
  Weight: 99.77 kg

DRUGS (5)
  1. GLYBURIDE [Concomitant]
     Dosage: 1.5MG PER DAY
  2. ASPIRIN [Concomitant]
     Dosage: 81MG PER DAY
  3. FUROSEMIDE [Concomitant]
  4. COREG [Concomitant]
     Dosage: 3.25MG TWICE PER DAY
     Dates: start: 19980223
  5. AVANDIA [Suspect]
     Indication: TYPE 2 DIABETES MELLITUS
     Dosage: 8MG PER DAY
     Route: 048
     Dates: start: 20000412, end: 20080305

REACTIONS (6)
  - HYPOAESTHESIA [None]
  - APHASIA [None]
  - MUSCLE SPASMS [None]
  - TRANSIENT ISCHAEMIC ATTACK [None]
  - HEMIPARESIS [None]
  - CEREBROVASCULAR ACCIDENT [None]
